FAERS Safety Report 5870632-2 (Version None)
Quarter: 2008Q3

REPORT INFORMATION
  Report Type: 
  Country: None (occurrence: None)
  Receive Date: 20080904
  Receipt Date: 20080901
  Transmission Date: 20090109
  Serious: Yes (Hospitalization)
  Sender: FDA-Public Use
  Company Number: B0535561A

PATIENT
  Age: 46 Year
  Sex: Female

DRUGS (4)
  1. AMOXICILLIN + CLAVULANATE POTASSIUM [Suspect]
     Dosage: 2G PER DAY
     Route: 048
     Dates: start: 20080530, end: 20080531
  2. CIPROFLOXACIN HYDROCHLORIDE [Suspect]
     Dosage: 500MG PER DAY
     Route: 065
     Dates: start: 20080529, end: 20080529
  3. SALAZOPYRIN EN-TAB [Suspect]
     Indication: PSORIATIC ARTHROPATHY
     Dosage: 2G PER DAY
     Route: 048
     Dates: start: 20080429, end: 20080531
  4. ITRACONAZOLE [Concomitant]
     Route: 048
     Dates: start: 20080531, end: 20080613

REACTIONS (4)
  - DYSPNOEA [None]
  - HEPATIC ENZYME INCREASED [None]
  - SKIN LESION [None]
  - URTICARIA [None]
